FAERS Safety Report 4819389-4 (Version None)
Quarter: 2005Q4

REPORT INFORMATION
  Report Type: 
  Country: None (occurrence: None)
  Receive Date: 20051103
  Receipt Date: 20050719
  Transmission Date: 20060501
  Serious: Yes (Hospitalization, Other)
  Sender: FDA-Public Use
  Company Number: US-MERCK-0507USA02779

PATIENT
  Age: 74 Year
  Sex: Female
  Weight: 75 kg

DRUGS (12)
  1. VIOXX [Suspect]
     Indication: OSTEOARTHRITIS
     Route: 048
     Dates: start: 19990825, end: 19990901
  2. VIOXX [Suspect]
     Route: 048
  3. VIOXX [Suspect]
     Indication: ARTHRALGIA
     Route: 048
     Dates: start: 19990825, end: 19990901
  4. VIOXX [Suspect]
     Route: 048
  5. AVAPRO [Concomitant]
     Indication: HYPERTENSION
     Route: 065
  6. HYDRODIURIL [Concomitant]
     Indication: HYPERTENSION
     Route: 065
  7. LORAZEPAM [Concomitant]
     Indication: ANXIETY
     Route: 065
  8. PREMARIN [Concomitant]
     Indication: MENOPAUSAL SYMPTOMS
     Route: 065
  9. TAMBOCOR [Concomitant]
     Indication: HEART RATE IRREGULAR
     Route: 065
  10. POTASSIUM (UNSPECIFIED) [Concomitant]
     Route: 065
  11. CALCIUM (UNSPECIFIED) [Concomitant]
     Route: 065
  12. VITAMINS (UNSPECIFIED) [Concomitant]
     Route: 065

REACTIONS (16)
  - APPENDICITIS [None]
  - ARTHROPATHY [None]
  - BLOOD CHOLESTEROL INCREASED [None]
  - BREAST CANCER [None]
  - BREAST CANCER METASTATIC [None]
  - CEREBRAL INFARCTION [None]
  - EXOSTOSIS [None]
  - GASTROOESOPHAGEAL REFLUX DISEASE [None]
  - HYPERTENSION [None]
  - JOINT SWELLING [None]
  - LARYNGEAL OEDEMA [None]
  - LARYNGEAL STENOSIS [None]
  - NAUSEA [None]
  - STRIDOR [None]
  - TRACHEAL OEDEMA [None]
  - TRANSIENT ISCHAEMIC ATTACK [None]
